FAERS Safety Report 9897882 (Version 1)
Quarter: 2014Q1

REPORT INFORMATION
  Report Type: Spontaneous
  Country: US (occurrence: US)
  Receive Date: 20140214
  Receipt Date: 20140214
  Transmission Date: 20141002
  Serious: No
  Sender: FDA-Public Use
  Company Number: US-PFIZER INC-2014039931

PATIENT
  Sex: Male

DRUGS (2)
  1. OXYCODONE HYDROCHLORIDE [Suspect]
     Indication: PAIN
     Dosage: UNK
  2. LYRICA [Suspect]
     Indication: PAIN
     Dosage: 100MG IN MORNING AND 150MG AT NIGHT,2XDAY
     Dates: start: 201401

REACTIONS (2)
  - Pain [Unknown]
  - Drug ineffective [Unknown]
